FAERS Safety Report 5345961-1 (Version None)
Quarter: 2007Q2

REPORT INFORMATION
  Report Type: 
  Country: None (occurrence: None)
  Receive Date: 20070605
  Receipt Date: 20070524
  Transmission Date: 20071010
  Serious: Yes (Death)
  Sender: FDA-Public Use
  Company Number: BE-JNJFOC-20070405692

PATIENT
  Age: 8 Decade
  Sex: Female

DRUGS (2)
  1. DURAGESIC-100 [Suspect]
     Route: 062
  2. DURAGESIC-100 [Suspect]
     Indication: BREAKTHROUGH PAIN
     Route: 062

REACTIONS (3)
  - BREAKTHROUGH PAIN [None]
  - DEATH [None]
  - PHARMACEUTICAL PRODUCT COMPLAINT [None]
